FAERS Safety Report 10278937 (Version 2)
Quarter: 2014Q3

REPORT INFORMATION
  Report Type: Spontaneous
  Country: CA (occurrence: CA)
  Receive Date: 20140706
  Receipt Date: 20140706
  Transmission Date: 20150326
  Serious: Yes (Death, Hospitalization)
  Sender: FDA-Public Use
  Company Number: CA-AMGEN INC.-CANSP2013079557

PATIENT
  Age: 90 Year
  Sex: Female

DRUGS (1)
  1. PROLIA [Suspect]
     Active Substance: DENOSUMAB
     Indication: OSTEOPOROSIS POSTMENOPAUSAL
     Dosage: 60 MG/ML, UNK
     Route: 065
     Dates: start: 20121031

REACTIONS (4)
  - Incontinence [Unknown]
  - Fall [Unknown]
  - Urinary tract infection [Unknown]
  - Death [Fatal]

NARRATIVE: CASE EVENT DATE: 20140608
